FAERS Safety Report 16637109 (Version 1)
Quarter: 2019Q3

REPORT INFORMATION
  Report Type: Spontaneous
  Country: US (occurrence: US)
  Receive Date: 20190726
  Receipt Date: 20190726
  Transmission Date: 20191004
  Serious: No
  Sender: FDA-Public Use
  Company Number: US-TEVA-2019-US-1082960

PATIENT
  Age: 15 Year
  Sex: Male

DRUGS (2)
  1. CLARAVIS [Suspect]
     Active Substance: ISOTRETINOIN
     Indication: ACNE CYSTIC
     Dosage: 60 MILLIGRAM DAILY;
     Dates: start: 201901, end: 201907
  2. CLARAVIS [Suspect]
     Active Substance: ISOTRETINOIN
     Dosage: 30 MILLIGRAM DAILY;
     Dates: start: 20190715

REACTIONS (5)
  - Crying [Recovered/Resolved]
  - Lip dry [Recovered/Resolved]
  - Mood swings [Recovered/Resolved]
  - Social avoidant behaviour [Recovered/Resolved]
  - Dry skin [Recovered/Resolved]
